FAERS Safety Report 24179141 (Version 1)
Quarter: 2024Q3

REPORT INFORMATION
  Report Type: Spontaneous
  Country: US (occurrence: None)
  Receive Date: 20240806
  Receipt Date: 20240806
  Transmission Date: 20241016
  Serious: Yes (Death, Life-Threatening, Hospitalization, Other)
  Sender: ASTRAZENECA
  Company Number: 2024A177778

PATIENT
  Age: 79 Year
  Sex: Male
  Weight: 87 kg

DRUGS (18)
  1. OMEPRAZOLE [Suspect]
     Active Substance: OMEPRAZOLE
     Dosage: UNKNOWN
     Route: 048
     Dates: start: 20231121
  2. METOPROLOL [Suspect]
     Active Substance: METOPROLOL
     Dosage: UNKNOWN
     Route: 048
     Dates: start: 20231204
  3. CABAZITAXEL [Suspect]
     Active Substance: CABAZITAXEL
     Indication: Adenocarcinoma metastatic
     Route: 042
     Dates: start: 20231107, end: 20231107
  4. CARBOPLATIN [Suspect]
     Active Substance: CARBOPLATIN
     Route: 042
     Dates: start: 20231107, end: 20231107
  5. LEUPROLIDE [Concomitant]
     Active Substance: LEUPROLIDE
     Dates: start: 20191004
  6. DENOSUMAB [Concomitant]
     Active Substance: DENOSUMAB
     Dates: start: 20210803
  7. ASPIRIN [Concomitant]
     Active Substance: ASPIRIN
     Dates: start: 20191021
  8. CYCLOBENZAPRINE [Concomitant]
     Active Substance: CYCLOBENZAPRINE
     Dates: start: 20220607
  9. PREDNISONE [Concomitant]
     Active Substance: PREDNISONE
     Dates: start: 20211118
  10. ZOFRAN [Concomitant]
     Active Substance: ONDANSETRON HYDROCHLORIDE
     Dates: start: 20200206
  11. PROCHLORPERAZINE [Concomitant]
     Active Substance: PROCHLORPERAZINE
     Dates: start: 20191112
  12. TAMSULOSIN [Concomitant]
     Active Substance: TAMSULOSIN
     Dates: start: 20210309
  13. CALCIUM CARBONATE [Concomitant]
     Active Substance: CALCIUM CARBONATE
     Dates: start: 20190919
  14. VITAMIN D3 [Concomitant]
     Active Substance: CHOLECALCIFEROL
     Dates: start: 20210126
  15. BIOTENE DRY MOUTH [Concomitant]
     Dates: start: 20231116
  16. XYLITOL [Concomitant]
     Active Substance: XYLITOL
     Dates: start: 20231116
  17. LISINOPRIL [Concomitant]
     Active Substance: LISINOPRIL
     Dates: start: 20231205
  18. POTASSIUM CHLORIDE [Concomitant]
     Active Substance: POTASSIUM CHLORIDE
     Dates: start: 20231216

REACTIONS (7)
  - Malignant neoplasm progression [Fatal]
  - Myocardial infarction [Recovered/Resolved]
  - Acute kidney injury [Recovered/Resolved]
  - Aspartate aminotransferase increased [Unknown]
  - Alanine aminotransferase increased [Unknown]
  - Abdominal pain [Recovered/Resolved]
  - Urinary retention [Recovered/Resolved]

NARRATIVE: CASE EVENT DATE: 20231121
